FAERS Safety Report 9395446 (Version 1)
Quarter: 2013Q3

REPORT INFORMATION
  Report Type: Spontaneous
  Country: FR (occurrence: FR)
  Receive Date: 20130711
  Receipt Date: 20130711
  Transmission Date: 20140515
  Serious: Yes (Hospitalization)
  Sender: FDA-Public Use
  Company Number: FR-TEVA-412424ISR

PATIENT
  Age: 83 Year
  Sex: Female

DRUGS (1)
  1. FUROSEMIDE [Suspect]

REACTIONS (2)
  - Ulcer [Unknown]
  - Infection [Unknown]
